FAERS Safety Report 6225757-9 (Version None)
Quarter: 2009Q2

REPORT INFORMATION
  Report Type: 
  Country: None (occurrence: None)
  Receive Date: 20090612
  Receipt Date: 20090422
  Transmission Date: 20091009
  Serious: No
  Sender: FDA-Public Use
  Company Number: US-ABBOTT-09P-163-0569816-00

PATIENT
  Sex: Male
  Weight: 83.99 kg

DRUGS (2)
  1. HUMIRA [Suspect]
     Indication: PSORIASIS
     Route: 058
     Dates: start: 20070101
  2. HUMIRA [Suspect]
     Indication: ARTHRALGIA
     Route: 058
     Dates: start: 20070101, end: 20070101

REACTIONS (4)
  - ARTHRALGIA [None]
  - INJECTION SITE IRRITATION [None]
  - INJECTION SITE PAIN [None]
  - MUSCULOSKELETAL STIFFNESS [None]
